FAERS Safety Report 10082038 (Version 2)
Quarter: 2017Q1

REPORT INFORMATION
  Report Type: Spontaneous
  Country: PT (occurrence: PT)
  Receive Date: 20140416
  Receipt Date: 20170117
  Transmission Date: 20170428
  Serious: Yes (Hospitalization)
  Sender: FDA-Public Use
  Company Number: PT-ALLERGAN-1407519US

PATIENT
  Sex: Male

DRUGS (3)
  1. CIPROFLOXACIN. [Concomitant]
     Active Substance: CIPROFLOXACIN
     Indication: PRODUCT USED FOR UNKNOWN INDICATION
     Dosage: 500 MG, BID
     Route: 065
  2. BOTOX [Suspect]
     Active Substance: ONABOTULINUMTOXINA
     Indication: BENIGN PROSTATIC HYPERPLASIA
     Dosage: 200 UNITS, SINGLE
     Route: 050
  3. BOTOX [Suspect]
     Active Substance: ONABOTULINUMTOXINA
     Indication: LOWER URINARY TRACT SYMPTOMS

REACTIONS (2)
  - Prostatitis [Unknown]
  - Off label use [Unknown]
